FAERS Safety Report 10360844 (Version 1)
Quarter: 2014Q3

REPORT INFORMATION
  Report Type: Spontaneous
  Country: BR (occurrence: BR)
  Receive Date: 20140804
  Receipt Date: 20140804
  Transmission Date: 20150326
  Serious: Yes (Congenital Anomaly)
  Sender: FDA-Public Use
  Company Number: BR-BAYER-2014-111987

PATIENT
  Age: 0 Year
  Sex: Male
  Weight: 2.9 kg

DRUGS (1)
  1. QLAIRA [Suspect]
     Active Substance: DIENOGEST\ESTRADIOL VALERATE
     Dosage: UNK
     Route: 064
     Dates: start: 201304, end: 20130427

REACTIONS (2)
  - Foetal exposure during pregnancy [Recovered/Resolved]
  - Congenital hair disorder [Not Recovered/Not Resolved]

NARRATIVE: CASE EVENT DATE: 201304
